FAERS Safety Report 17581901 (Version 1)
Quarter: 2020Q1

REPORT INFORMATION
  Report Type: Spontaneous
  Country: GB (occurrence: GB)
  Receive Date: 20200325
  Receipt Date: 20200325
  Transmission Date: 20200409
  Serious: Yes (Death, Other)
  Sender: FDA-Public Use
  Company Number: NVSC2020GB082520

PATIENT
  Age: 27 Year
  Sex: Female

DRUGS (11)
  1. VALPROATE SODIUM. [Suspect]
     Active Substance: VALPROATE SODIUM
     Indication: STATUS EPILEPTICUS
     Dosage: UNK
     Route: 065
  2. THIOPENTONE [Suspect]
     Active Substance: THIOPENTAL SODIUM
     Indication: ANAESTHESIA
     Dosage: 8 MG/KG, QH
     Route: 065
  3. MIDAZOLAM. [Suspect]
     Active Substance: MIDAZOLAM
     Indication: ANAESTHESIA
     Dosage: 24 MG, QH
     Route: 065
  4. METHYLPREDNISOLONE. [Suspect]
     Active Substance: METHYLPREDNISOLONE
     Indication: STATUS EPILEPTICUS
     Dosage: UNK
     Route: 065
  5. PHENOBARBITONE [Suspect]
     Active Substance: PHENOBARBITAL
     Indication: STATUS EPILEPTICUS
     Dosage: UNK
     Route: 065
  6. LACOSAMIDE. [Suspect]
     Active Substance: LACOSAMIDE
     Indication: STATUS EPILEPTICUS
     Dosage: UNK
     Route: 065
  7. LEVETIRACETAM. [Suspect]
     Active Substance: LEVETIRACETAM
     Indication: STATUS EPILEPTICUS
     Dosage: UNK
     Route: 065
  8. PHENYOTIN [Suspect]
     Active Substance: PHENYTOIN
     Indication: STATUS EPILEPTICUS
     Dosage: UNK
     Route: 065
  9. KETAMINE [Suspect]
     Active Substance: KETAMINE
     Indication: ANAESTHESIA
     Dosage: 1.5 MG
     Route: 065
  10. PROPOFOL. [Suspect]
     Active Substance: PROPOFOL
     Indication: ANAESTHESIA
     Dosage: 20 MG, QH
     Route: 065
  11. PREDNISOLONE. [Suspect]
     Active Substance: PREDNISOLONE
     Indication: STATUS EPILEPTICUS
     Dosage: UNK
     Route: 065

REACTIONS (12)
  - Seizure [Unknown]
  - Hypocalcaemia [Unknown]
  - Hypomagnesaemia [Unknown]
  - Gastrointestinal malformation [Unknown]
  - Multiple organ dysfunction syndrome [Fatal]
  - Acute hepatic failure [Unknown]
  - Hypokalaemia [Unknown]
  - Metabolic acidosis [Unknown]
  - Sepsis [Unknown]
  - Status epilepticus [Fatal]
  - Acute kidney injury [Unknown]
  - Intensive care unit acquired weakness [Unknown]
